FAERS Safety Report 17584742 (Version 2)
Quarter: 2020Q2

REPORT INFORMATION
  Report Type: Spontaneous
  Country: BE (occurrence: BE)
  Receive Date: 20200326
  Receipt Date: 20200408
  Transmission Date: 20200713
  Serious: Yes (Hospitalization, Other)
  Sender: FDA-Public Use
  Company Number: BE-PFIZER INC-2020125456

PATIENT
  Sex: Female
  Weight: 97 kg

DRUGS (11)
  1. METFORMAX [Concomitant]
     Active Substance: METFORMIN HYDROCHLORIDE
     Dosage: 2 DF, 1X/DAY
     Dates: start: 201811
  2. NOBITEN [NEBIVOLOL] [Concomitant]
     Dosage: UNK UNK, 1X/DAY
     Dates: start: 202002
  3. PANTOZOL [Concomitant]
     Active Substance: PANTOPRAZOLE SODIUM
     Dosage: 1 DF, 1X/DAY
     Dates: start: 202002
  4. NOBITEN [NEBIVOLOL] [Concomitant]
     Dosage: 1 DF, 1X/DAY
     Dates: start: 201811
  5. EZETIMIBE EG [Suspect]
     Active Substance: EZETIMIBE
     Indication: HYPERCHOLESTEROLAEMIA
     Dosage: 1 DF, 1X/DAY
     Dates: start: 20190124, end: 20200212
  6. CYMBALTA [Concomitant]
     Active Substance: DULOXETINE HYDROCHLORIDE
     Dosage: UNK UNK, 1X/DAY
     Dates: start: 202002
  7. TOTALIP [Suspect]
     Active Substance: ATORVASTATIN
     Indication: HYPERCHOLESTEROLAEMIA
     Dosage: 1 DF, 1X/DAY
     Route: 048
     Dates: start: 20190911, end: 20200211
  8. CYMBALTA [Concomitant]
     Active Substance: DULOXETINE HYDROCHLORIDE
     Dosage: 1 DF, 1X/DAY
     Dates: start: 201811
  9. LEVOTHYROXINE CHRISTIAENS [Concomitant]
     Active Substance: LEVOTHYROXINE SODIUM
     Dosage: 1 DF, 1X/DAY
     Dates: start: 202002
  10. GAMBARAN [NABUMETONE] [Concomitant]
     Dosage: 1 DF, 1X/DAY
     Dates: start: 201811
  11. METFORMIN [Concomitant]
     Active Substance: METFORMIN HYDROCHLORIDE
     Dosage: 2 DF, 1X/DAY
     Dates: start: 202002

REACTIONS (3)
  - Disease recurrence [Recovering/Resolving]
  - Pancreatitis acute [Recovering/Resolving]
  - Weight decreased [Unknown]

NARRATIVE: CASE EVENT DATE: 20200212
